FAERS Safety Report 25248893 (Version 3)
Quarter: 2025Q2

REPORT INFORMATION
  Report Type: Report from Study
  Country: CA (occurrence: CA)
  Receive Date: 20250429
  Receipt Date: 20250625
  Transmission Date: 20250716
  Serious: Yes (Other)
  Sender: JAZZ
  Company Number: CA-JAZZ PHARMACEUTICALS-2025-CA-007353

PATIENT
  Sex: Male

DRUGS (3)
  1. EPIDIOLEX [Interacting]
     Active Substance: CANNABIDIOL
     Indication: Product used for unknown indication
  2. EPIDIOLEX [Interacting]
     Active Substance: CANNABIDIOL
     Dosage: 0.65 MILLILITER, BID
  3. CLOBAZAM [Interacting]
     Active Substance: CLOBAZAM
     Indication: Product used for unknown indication

REACTIONS (5)
  - Depressed level of consciousness [Unknown]
  - Labelled drug-drug interaction issue [Unknown]
  - Insomnia [Unknown]
  - Hypotonia [Unknown]
  - Behaviour disorder [Unknown]
